FAERS Safety Report 16142558 (Version 1)
Quarter: 2019Q2

REPORT INFORMATION
  Report Type: Spontaneous
  Country: FR (occurrence: FR)
  Receive Date: 20190401
  Receipt Date: 20190401
  Transmission Date: 20190711
  Serious: Yes (Other)
  Sender: FDA-Public Use
  Company Number: FR-MYLANLABS-2019M1029006

PATIENT
  Age: 36 Year
  Sex: Female
  Weight: 53 kg

DRUGS (1)
  1. EFUDIX [Suspect]
     Active Substance: FLUOROURACIL
     Indication: ANOGENITAL WARTS
     Dosage: 1 APPLICATION 3/SEMAINE
     Route: 003
     Dates: start: 20180801, end: 20180820

REACTIONS (6)
  - Genital haemorrhage [Not Recovered/Not Resolved]
  - Genital discomfort [Not Recovered/Not Resolved]
  - Application site burn [Not Recovered/Not Resolved]
  - Genital discharge [Not Recovered/Not Resolved]
  - Dysuria [Not Recovered/Not Resolved]
  - Genital pain [Not Recovered/Not Resolved]

NARRATIVE: CASE EVENT DATE: 201808
